FAERS Safety Report 10177849 (Version 2)
Quarter: 2014Q2

REPORT INFORMATION
  Report Type: Spontaneous
  Country: GB (occurrence: GB)
  Receive Date: 20140516
  Receipt Date: 20140527
  Transmission Date: 20141212
  Serious: Yes (Other)
  Sender: FDA-Public Use
  Company Number: GB-ASTRAZENECA-2014SE31733

PATIENT
  Age: 68 Year
  Sex: Male
  Weight: 60 kg

DRUGS (4)
  1. ZOLADEX [Suspect]
     Indication: PROSTATE CANCER
     Route: 058
  2. CASODEX [Suspect]
     Indication: PROSTATE CANCER
     Route: 048
     Dates: start: 201402, end: 20140425
  3. ASPIRIN [Concomitant]
     Indication: ATRIAL FIBRILLATION
     Route: 048
     Dates: start: 2012
  4. TOLTERODINE [Concomitant]
     Indication: POLLAKIURIA
     Route: 048
     Dates: start: 201402

REACTIONS (6)
  - Disease progression [Unknown]
  - Adverse event [Unknown]
  - Spinal cord compression [Unknown]
  - Drug resistance [Unknown]
  - Rash [Recovered/Resolved]
  - Drug hypersensitivity [Unknown]
